FAERS Safety Report 6287782-1 (Version None)
Quarter: 2009Q3

REPORT INFORMATION
  Report Type: 
  Country: None (occurrence: None)
  Receive Date: 20090729
  Receipt Date: 20080415
  Transmission Date: 20100115
  Serious: Yes (Other)
  Sender: FDA-Public Use
  Company Number: US-ASTRAZENECA-2007UW25119

PATIENT
  Age: 52 Year
  Sex: Female
  Weight: 122.5 kg

DRUGS (16)
  1. SEROQUEL [Suspect]
     Indication: DEPRESSION
     Route: 048
     Dates: start: 20020901
  2. SEROQUEL [Suspect]
     Indication: ANXIETY
     Route: 048
     Dates: start: 20020901
  3. SEROQUEL [Suspect]
     Indication: SCHIZOPHRENIA
     Route: 048
     Dates: start: 20020901
  4. SEROQUEL [Suspect]
     Dosage: 25 MG-150 MG
     Route: 048
     Dates: start: 20030514
  5. SEROQUEL [Suspect]
     Dosage: 25 MG-150 MG
     Route: 048
     Dates: start: 20030514
  6. SEROQUEL [Suspect]
     Dosage: 25 MG-150 MG
     Route: 048
     Dates: start: 20030514
  7. PAXIL [Concomitant]
  8. LIPITOR [Concomitant]
  9. FUROSEMIDE [Concomitant]
  10. PLENDIL [Concomitant]
  11. DESYREL [Concomitant]
  12. TOPROL-XL [Concomitant]
  13. XANAX [Concomitant]
  14. KLOR-CON [Concomitant]
  15. AVANDAMET [Concomitant]
  16. AVANDIA [Concomitant]

REACTIONS (2)
  - DIABETES MELLITUS [None]
  - DIABETIC FOOT [None]
